FAERS Safety Report 10018292 (Version 2)
Quarter: 2014Q1

REPORT INFORMATION
  Report Type: Spontaneous
  Country: US (occurrence: US)
  Receive Date: 20140318
  Receipt Date: 20140318
  Transmission Date: 20141002
  Serious: No
  Sender: FDA-Public Use
  Company Number: US-BRISTOL-MYERS SQUIBB COMPANY-19889831

PATIENT
  Age: 51 Year
  Sex: Female
  Weight: 88.9 kg

DRUGS (14)
  1. ERBITUX [Suspect]
     Indication: COLON CANCER RECURRENT
     Dates: start: 20110712
  2. IRINOTECAN [Suspect]
     Indication: COLON CANCER RECURRENT
     Dates: start: 20110712
  3. LEUCOVORIN [Suspect]
     Indication: COLON CANCER RECURRENT
     Dates: start: 20110712
  4. 5-FU [Suspect]
     Indication: COLON CANCER RECURRENT
     Dates: start: 20110712
  5. OXALIPLATIN [Suspect]
  6. LAMICTAL [Concomitant]
     Dosage: DISCONTINUED
  7. CLONAZEPAM [Concomitant]
  8. AMLODIPINE [Concomitant]
  9. BUPROPION [Concomitant]
  10. WARFARIN [Concomitant]
  11. VITAMIN D3 [Concomitant]
  12. DOXEPIN [Concomitant]
  13. SPIRONOLACTONE [Concomitant]
  14. LOVENOX [Concomitant]

REACTIONS (1)
  - Neutropenia [Recovered/Resolved]
